FAERS Safety Report 15533642 (Version 2)
Quarter: 2018Q4

REPORT INFORMATION
  Report Type: Spontaneous
  Country: CZ (occurrence: CZ)
  Receive Date: 20181019
  Receipt Date: 20181101
  Transmission Date: 20190205
  Serious: Yes (Other)
  Sender: FDA-Public Use
  Company Number: CZ-MYLANLABS-2018M1078385

PATIENT
  Age: 62 Year
  Sex: Male

DRUGS (8)
  1. FOLINIC ACID [Suspect]
     Active Substance: LEUCOVORIN
     Dosage: 1 CYCLICAL
     Dates: start: 20100120, end: 201006
  2. IRINOTECAN [Suspect]
     Active Substance: IRINOTECAN
     Indication: COLORECTAL CANCER METASTATIC
     Dosage: 7 CYCLE
     Dates: start: 201504
  3. FLUOROURACIL. [Suspect]
     Active Substance: FLUOROURACIL
     Dosage: TOTAL 12 CYCLES- FOLFOX4, 7CYCLES
     Dates: start: 20100120, end: 201006
  4. BEVACIZUMAB. [Suspect]
     Active Substance: BEVACIZUMAB
     Indication: COLORECTAL CANCER METASTATIC
     Dosage: 7 CYCLE
     Dates: start: 201504, end: 201508
  5. FLUOROURACIL. [Suspect]
     Active Substance: FLUOROURACIL
     Indication: COLORECTAL CANCER METASTATIC
     Dosage: 1 CYCLICAL
     Dates: start: 201504
  6. FOLINIC ACID [Suspect]
     Active Substance: LEUCOVORIN
     Indication: COLORECTAL CANCER METASTATIC
     Dosage: UNK UNK, CYCLIC
     Dates: start: 201504
  7. OXALIPLATIN. [Suspect]
     Active Substance: OXALIPLATIN
     Indication: COLORECTAL CANCER METASTATIC
     Dosage: TOTAL OF 12 CYCLES
     Dates: start: 20100120
  8. CALCIUM FOLINATE [Suspect]
     Active Substance: LEUCOVORIN CALCIUM
     Indication: COLORECTAL CANCER METASTATIC
     Dosage: 1 CYCLICAL
     Dates: start: 201504

REACTIONS (6)
  - Loss of consciousness [Unknown]
  - Fall [Unknown]
  - Drug intolerance [Unknown]
  - Circulatory collapse [Unknown]
  - Fracture [Unknown]
  - Peripheral sensory neuropathy [Unknown]
